FAERS Safety Report 9467418 (Version 1)
Quarter: 2013Q3

REPORT INFORMATION
  Report Type: Spontaneous
  Country: US (occurrence: US)
  Receive Date: 20130821
  Receipt Date: 20130821
  Transmission Date: 20140515
  Serious: Yes (Other)
  Sender: FDA-Public Use
  Company Number: US-AMGEN-USASP2013057284

PATIENT
  Age: 45 Year
  Sex: Female
  Weight: 104.31 kg

DRUGS (8)
  1. ENBREL [Suspect]
     Indication: PRODUCT USED FOR UNKNOWN INDICATION
     Dosage: 50 MG, QWK
     Route: 058
  2. CYMBALTA [Concomitant]
     Dosage: 60 MG, UNK
  3. SINGULAIR [Concomitant]
     Dosage: 10 MG, UNK
  4. METHOTREXATE [Concomitant]
     Dosage: 2.5 MG, UNK
  5. NAPROXEN [Concomitant]
     Dosage: 500 MG, UNK
  6. ASA [Concomitant]
     Dosage: 81 MG, UNK (EC) (LOW DOSE)
  7. CLARITIN                           /00413701/ [Concomitant]
     Dosage: 10 MG, UNK
  8. FOLIC ACID [Concomitant]
     Dosage: UNK

REACTIONS (3)
  - Lower respiratory tract infection [Unknown]
  - Influenza like illness [Unknown]
  - Ligament rupture [Unknown]
